FAERS Safety Report 18911094 (Version 4)
Quarter: 2022Q3

REPORT INFORMATION
  Report Type: Spontaneous
  Country: US (occurrence: US)
  Receive Date: 20210218
  Receipt Date: 20220830
  Transmission Date: 20221027
  Serious: No
  Sender: FDA-Public Use
  Company Number: US-PFIZER INC-2021142489

PATIENT
  Age: 59 Year
  Sex: Male

DRUGS (1)
  1. EUCRISA [Suspect]
     Active Substance: CRISABOROLE
     Dosage: 2X/DAY (APPLY A THIN LAYER TO AFFECTED AREAS OF FACE AND SCALP TWICE DAILY)
     Route: 061

REACTIONS (3)
  - Illness [Unknown]
  - Rash [Unknown]
  - Intentional product misuse [Unknown]
